FAERS Safety Report 5708580-0 (Version None)
Quarter: 2008Q2

REPORT INFORMATION
  Report Type: 
  Country: None (occurrence: None)
  Receive Date: 20080417
  Receipt Date: 20080408
  Transmission Date: 20081010
  Serious: Yes (Other)
  Sender: FDA-Public Use
  Company Number: BR-PFIZER INC-2008031633

PATIENT
  Sex: Male

DRUGS (1)
  1. ACCUPRIL [Suspect]
     Route: 048

REACTIONS (1)
  - HAEMODIALYSIS [None]
